FAERS Safety Report 9184061 (Version 2)
Quarter: 2013Q1

REPORT INFORMATION
  Report Type: Spontaneous
  Country: JP (occurrence: JP)
  Receive Date: 20121031
  Receipt Date: 20130326
  Transmission Date: 20140127
  Serious: Yes (Life-Threatening, Hospitalization, Other)
  Sender: FDA-Public Use
  Company Number: PHHY2012JP084688

PATIENT
  Age: 34 Year
  Sex: Female

DRUGS (43)
  1. CLOZARIL [Suspect]
     Indication: SCHIZOPHRENIA, PARANOID TYPE
     Dosage: 12.5 MG
     Route: 048
     Dates: start: 20101203, end: 20101203
  2. CLOZARIL [Suspect]
     Dosage: 25 MG
     Route: 048
     Dates: start: 20101204, end: 20101206
  3. CLOZARIL [Suspect]
     Dosage: 50 MG
     Route: 048
     Dates: start: 20101207, end: 20101209
  4. CLOZARIL [Suspect]
     Dosage: 75 MG
     Route: 048
     Dates: start: 20101210, end: 20101211
  5. CLOZARIL [Suspect]
     Dosage: 100 MG
     Route: 048
     Dates: start: 20101212, end: 20101213
  6. CLOZARIL [Suspect]
     Dosage: 125 MG
     Route: 048
     Dates: start: 20101214, end: 20101216
  7. CLOZARIL [Suspect]
     Dosage: 150 MG
     Route: 048
     Dates: start: 20111217
  8. CLOZARIL [Suspect]
     Dosage: 175 MG
     Route: 048
     Dates: start: 20101220, end: 20101222
  9. CLOZARIL [Suspect]
     Dosage: 200 MG
     Route: 048
     Dates: start: 20101223, end: 20110111
  10. CLOZARIL [Suspect]
     Dosage: 225 MG
     Route: 048
     Dates: start: 20110112, end: 20110118
  11. CLOZARIL [Suspect]
     Dosage: 250 MG
     Route: 048
     Dates: start: 20110119, end: 20110201
  12. CLOZARIL [Suspect]
     Dosage: 275 MG
     Route: 048
     Dates: start: 20110216, end: 20110222
  13. CLOZARIL [Suspect]
     Dosage: 300 MG
     Route: 048
     Dates: start: 20110223, end: 20110308
  14. CLOZARIL [Suspect]
     Dosage: 325 MG
     Route: 048
     Dates: start: 20110309, end: 20110315
  15. CLOZARIL [Suspect]
     Dosage: 375 MG
     Route: 048
     Dates: start: 20110316, end: 20110322
  16. CLOZARIL [Suspect]
     Dosage: 400 MG
     Dates: start: 20110323, end: 20110329
  17. CLOZARIL [Suspect]
     Dosage: 425 MG
     Route: 048
     Dates: start: 20110323, end: 20110329
  18. CLOZARIL [Suspect]
     Dosage: 450 MG
     Route: 048
     Dates: start: 20110330, end: 20110412
  19. CLOZARIL [Suspect]
     Dosage: 475 MG
     Route: 048
     Dates: start: 20110413, end: 20110419
  20. CLOZARIL [Suspect]
     Dosage: 500 MG
     Dates: start: 20110420, end: 20110517
  21. CLOZARIL [Suspect]
     Dosage: 525 MG
     Route: 048
     Dates: start: 20110518, end: 201106
  22. CLOZARIL [Suspect]
     Dosage: 425 MG
     Route: 048
     Dates: start: 201106, end: 20110809
  23. WYPAX [Concomitant]
     Dosage: 2 MG, UNK
     Route: 048
  24. DEZOLAM [Concomitant]
     Dosage: 2 MG, UNK
     Route: 048
  25. TRIAZOLAM [Concomitant]
     Dosage: 0.5 MG, UNK
     Route: 048
  26. LAXOBERON [Concomitant]
     Dosage: UNK UKN, UNK
     Route: 048
  27. DANTROLENE SODIUM [Concomitant]
     Dosage: 20 MG (FOR 3 DAYS)
     Route: 042
  28. PYRETHIA//PROMETHAZINE HYDROCHLORIDE [Concomitant]
     Dosage: 4 MG
     Route: 048
     Dates: start: 20101125
  29. PYRETHIA//PROMETHAZINE HYDROCHLORIDE [Concomitant]
     Dosage: 6 UNK, UNK
  30. PYRETHIA//PROMETHAZINE HYDROCHLORIDE [Concomitant]
     Dosage: 75 MG, UNK
     Route: 048
     Dates: start: 20110706
  31. MARZULENE [Concomitant]
     Dosage: 1500 MG, UNK
     Route: 048
     Dates: start: 20110706
  32. BIOFERMIN [Concomitant]
     Dosage: 3000 MG, UNK
     Route: 048
     Dates: start: 20110706
  33. MEVAN//PRAVASTATIN SODIUM [Concomitant]
     Dosage: 5 MG, UNK
     Route: 048
     Dates: start: 20110706
  34. CLARITIN [Concomitant]
     Dosage: 10 MG, UNK
     Route: 048
     Dates: start: 20110706
  35. GOODMIN [Concomitant]
     Dosage: 0.25 MG, UNK
     Route: 048
     Dates: start: 20110706
  36. HALCION [Concomitant]
     Dosage: 0.25 MG, UNK
     Route: 048
     Dates: start: 20110706
  37. FLUNITRAZEPAM [Concomitant]
     Dosage: 2 MG, UNK
     Route: 048
     Dates: start: 20110706
  38. REFLEX//MIRTAZAPINE [Concomitant]
     Dosage: 20 MG, UNK
     Route: 048
     Dates: start: 20110706
  39. LIMAS [Concomitant]
     Indication: SCHIZOPHRENIA, PARANOID TYPE
     Dosage: 400 MG, UNK
     Route: 048
     Dates: start: 20110706
  40. HIRNAMIN [Concomitant]
     Dosage: 25 MG, UNK
     Route: 048
     Dates: start: 20110926
  41. ZYPREXA [Concomitant]
     Dosage: 10 MG, UNK
     Route: 048
     Dates: start: 20110914
  42. ZYPREXA [Concomitant]
     Dosage: 15 MG, UNK
     Route: 048
  43. ZYPREXA [Concomitant]
     Dosage: 10 MG, UNK
     Route: 048

REACTIONS (21)
  - Self injurious behaviour [Unknown]
  - Neuroleptic malignant syndrome [Recovered/Resolved]
  - Stupor [Recovered/Resolved]
  - Pyrexia [Recovered/Resolved]
  - Myotonia [Recovered/Resolved]
  - Blood creatine phosphokinase increased [Recovered/Resolved]
  - Hyperhidrosis [Unknown]
  - Psychotic disorder [Unknown]
  - Persecutory delusion [Recovering/Resolving]
  - Hallucination, auditory [Recovering/Resolving]
  - Abnormal behaviour [Unknown]
  - Grand mal convulsion [Recovered/Resolved]
  - Agranulocytosis [Unknown]
  - Neutropenia [Unknown]
  - Nasopharyngitis [Recovering/Resolving]
  - Malaise [Unknown]
  - Stress [Unknown]
  - Heart rate increased [Unknown]
  - Somnolence [Unknown]
  - Constipation [Recovering/Resolving]
  - Therapeutic response decreased [Unknown]
